FAERS Safety Report 12227788 (Version 2)
Quarter: 2016Q2

REPORT INFORMATION
  Report Type: Spontaneous
  Country: US (occurrence: US)
  Receive Date: 20160401
  Receipt Date: 20160406
  Transmission Date: 20160815
  Serious: No
  Sender: FDA-Public Use
  Company Number: US-HORIZON-RAV-0061-2016

PATIENT
  Age: 1 Year
  Sex: Male

DRUGS (2)
  1. RAVICTI [Suspect]
     Active Substance: GLYCEROL PHENYLBUTYRATE
     Indication: CARBAMOYL PHOSPHATE SYNTHETASE DEFICIENCY
     Dosage: 1.5 ML TWICE DAILY AND 1 ML ONCE DAILY (4 ML TOTAL)
     Dates: start: 20150812
  2. ANAMIX [Concomitant]
     Indication: CARBAMOYL PHOSPHATE SYNTHETASE DEFICIENCY

REACTIONS (2)
  - Respiratory tract infection viral [Recovering/Resolving]
  - Amino acid level decreased [Recovered/Resolved]
